FAERS Safety Report 17071500 (Version 1)
Quarter: 2019Q4

REPORT INFORMATION
  Report Type: Spontaneous
  Country: JP (occurrence: JP)
  Receive Date: 20191125
  Receipt Date: 20191125
  Transmission Date: 20200122
  Serious: Yes (Hospitalization)
  Sender: FDA-Public Use
  Company Number: JP-EISAI MEDICAL RESEARCH-EC-2019-065744

PATIENT
  Age: 54 Year
  Sex: Male

DRUGS (1)
  1. LENVIMA [Suspect]
     Active Substance: LENVATINIB
     Indication: THYROID CANCER
     Dosage: DOSE AND FREQUENCY NOT PROVIDED
     Route: 048
     Dates: start: 20190304, end: 20191118

REACTIONS (1)
  - Perforation [Not Recovered/Not Resolved]

NARRATIVE: CASE EVENT DATE: 20191118
